FAERS Safety Report 25150539 (Version 5)
Quarter: 2025Q2

REPORT INFORMATION
  Report Type: Spontaneous
  Country: US (occurrence: US)
  Receive Date: 20250402
  Receipt Date: 20250508
  Transmission Date: 20250717
  Serious: No
  Sender: PFIZER
  Company Number: US-PFIZER INC-202500068576

PATIENT
  Age: 8 Year
  Sex: Female
  Weight: 16.78 kg

DRUGS (17)
  1. GENOTROPIN [Suspect]
     Active Substance: SOMATROPIN
     Indication: Failure to thrive
     Dosage: 0.3 MG, DAILY
     Route: 058
  2. OXYMETAZOLINE [Concomitant]
     Active Substance: OXYMETAZOLINE
     Indication: Epistaxis
     Route: 045
  3. CHOLECALCIFEROL [Concomitant]
     Active Substance: CHOLECALCIFEROL
     Indication: Nutritional supplementation
     Dosage: 1 ML, DAILY THROUGH G-TUBE
     Route: 050
  4. ZYRTEC [Concomitant]
     Active Substance: CETIRIZINE HYDROCHLORIDE
     Indication: Seasonal allergy
     Dosage: 5 ML, DAILY VIA G-TUBE
     Route: 050
  5. PREVACID [Concomitant]
     Active Substance: LANSOPRAZOLE
     Indication: Gastrooesophageal reflux disease
     Dosage: 4 ML, 2X/DAY VIA G-TUBE
     Route: 050
  6. MELATONIN [Concomitant]
     Active Substance: MELATONIN
     Indication: Sleep disorder
     Dosage: 1 MG, DAILY VIA G-TUBE
     Route: 050
  7. SYNTHROID [Concomitant]
     Active Substance: LEVOTHYROXINE SODIUM
     Indication: Hypothyroidism
     Dosage: 75 UG, DAILY (HALF TABLET DAILY VIA G-TUBE)
     Route: 050
  8. CUVPOSA [GLYCOPYRRONIUM BROMIDE] [Concomitant]
     Indication: Secretion discharge
     Dosage: 1.2 ML, 2X/DAY VIA G-TUBE
     Route: 050
  9. FLOVENT [Concomitant]
     Active Substance: FLUTICASONE PROPIONATE
     Indication: Asthma
     Dosage: UNK, 2X/DAY (2 PUFFS TWICE DAILY)
  10. FLONASE [Concomitant]
     Active Substance: FLUTICASONE PROPIONATE
     Indication: Asthma
     Dosage: UNK, DAILY (ONE SPRAY EACH NOSTRIL DAILY)
     Route: 045
  11. CIPRODEX [CIPROFLOXACIN HYDROCHLORIDE MONOHYDRATE;DEXAMETHASONE] [Concomitant]
     Indication: Nasal inflammation
     Dosage: 5 DF, 2X/DAY (5 DROPS IN EACH TWICE DAILY FOR SEVEN DAYS)
  12. CIPRODEX [CIPROFLOXACIN HYDROCHLORIDE MONOHYDRATE;DEXAMETHASONE] [Concomitant]
     Indication: Ear infection
  13. ALBUTEROL SULFATE [Concomitant]
     Active Substance: ALBUTEROL SULFATE
     Indication: Asthma
  14. ALBUTEROL SULFATE [Concomitant]
     Active Substance: ALBUTEROL SULFATE
  15. FLOXAN [CIPROFLOXACIN] [Concomitant]
     Dosage: 5 DF, 2X/DAY (5 DROPS IN THE AFFECTED EAR TWICE DAILY/ ONLY TAKES WHEN THERE IS AN ISSUE)
     Route: 061
  16. DESMOPRESSIN [Concomitant]
     Active Substance: DESMOPRESSIN
     Route: 058
  17. DESMOPRESSIN [Concomitant]
     Active Substance: DESMOPRESSIN

REACTIONS (5)
  - Drug dose omission by device [Unknown]
  - Device use issue [Unknown]
  - Device information output issue [Unknown]
  - Device power source issue [Unknown]
  - Device leakage [Unknown]
